FAERS Safety Report 6315963-7 (Version None)
Quarter: 2009Q3

REPORT INFORMATION
  Report Type: 
  Country: None (occurrence: None)
  Receive Date: 20090820
  Receipt Date: 20090227
  Transmission Date: 20100115
  Serious: No
  Sender: FDA-Public Use
  Company Number: US-KINGPHARMUSA00001-K200900220

PATIENT
  Sex: Female
  Weight: 68.027 kg

DRUGS (8)
  1. CYTOMEL [Suspect]
     Dosage: 5 MCG, QD
     Route: 048
  2. CYTOMEL [Suspect]
     Dosage: 10 MCG, QD
     Route: 048
  3. CYTOMEL [Suspect]
     Dosage: 15 MCG, QD
     Route: 048
     Dates: end: 20090201
  4. CYTOMEL [Suspect]
     Dosage: 10 MCG, QD
     Route: 048
     Dates: start: 20090201
  5. LEVOTHYROXINE [Concomitant]
     Dosage: UNK
  6. SUPPLEMENTS [Concomitant]
  7. VITAMINS                           /90003601/ [Concomitant]
  8. FLAGYL [Concomitant]
     Indication: GASTRIC INFECTION
     Dosage: UNK
     Dates: start: 20090201

REACTIONS (11)
  - CHAPPED LIPS [None]
  - DEPRESSED MOOD [None]
  - DIARRHOEA [None]
  - DRUG INEFFECTIVE [None]
  - FEELING ABNORMAL [None]
  - GASTRIC INFECTION [None]
  - GLOSSODYNIA [None]
  - HOT FLUSH [None]
  - HYPERSENSITIVITY [None]
  - PARAESTHESIA [None]
  - STOMATITIS [None]
